FAERS Safety Report 14931497 (Version 1)
Quarter: 2018Q2

REPORT INFORMATION
  Report Type: Spontaneous
  Country: US (occurrence: US)
  Receive Date: 20180524
  Receipt Date: 20180524
  Transmission Date: 20180711
  Serious: No
  Sender: FDA-Public Use
  Company Number: US-UNITED THERAPEUTICS-UNT-2018-006140

PATIENT
  Age: 31 Year
  Sex: Female
  Weight: 72.11 kg

DRUGS (3)
  1. ADCIRCA [Concomitant]
     Active Substance: TADALAFIL
     Indication: PRODUCT USED FOR UNKNOWN INDICATION
     Route: 065
  2. REMODULIN [Suspect]
     Active Substance: TREPROSTINIL
     Indication: PULMONARY ARTERIAL HYPERTENSION
     Dosage: 0.008 ?G/KG, CONTINUING
     Route: 041
     Dates: start: 20180313
  3. REMODULIN [Suspect]
     Active Substance: TREPROSTINIL
     Dosage: 0.0125 ?G/KG, CONTINUING
     Route: 041

REACTIONS (7)
  - Gingival swelling [Unknown]
  - Headache [Unknown]
  - Dizziness [Unknown]
  - Weight decreased [Unknown]
  - Pain in jaw [Unknown]
  - Hot flush [Unknown]
  - Maternal exposure during pregnancy [Unknown]

NARRATIVE: CASE EVENT DATE: 20180430
